FAERS Safety Report 18416273 (Version 1)
Quarter: 2020Q4

REPORT INFORMATION
  Report Type: Spontaneous
  Country: GB (occurrence: GB)
  Receive Date: 20201022
  Receipt Date: 20201022
  Transmission Date: 20210114
  Serious: Yes (Other)
  Sender: FDA-Public Use
  Company Number: GB-ASTRAZENECA-2020SF33171

PATIENT
  Sex: Male

DRUGS (25)
  1. SULFAMETHOXAZOLE [Suspect]
     Active Substance: SULFAMETHOXAZOLE
     Route: 065
  2. ASCORBIC ACID. [Suspect]
     Active Substance: ASCORBIC ACID
     Route: 065
  3. PIMPINELLA ANISUM [Suspect]
     Active Substance: PIMPINELLA ANISUM WHOLE
     Route: 065
  4. PREGABALIN. [Suspect]
     Active Substance: PREGABALIN
     Route: 065
  5. AMOXICILLIN. [Suspect]
     Active Substance: AMOXICILLIN
     Route: 065
  6. FLAGYL [Suspect]
     Active Substance: METRONIDAZOLE\METRONIDAZOLE HYDROCHLORIDE
     Route: 065
  7. L-ASPARTIC ACID [Suspect]
     Active Substance: ASPARTIC ACID
     Route: 065
  8. CURCUMIN E100 [Suspect]
     Active Substance: CURCUMIN\DIETARY SUPPLEMENT
     Route: 065
  9. MAGNESIUM [Suspect]
     Active Substance: MAGNESIUM
     Route: 065
  10. MINOCYCLINE [Suspect]
     Active Substance: MINOCYCLINE HYDROCHLORIDE
     Route: 065
  11. RIFAMPICIN [Suspect]
     Active Substance: RIFAMPIN
     Route: 065
  12. L-THEANINE [Suspect]
     Active Substance: DIETARY SUPPLEMENT
     Route: 065
  13. CANNABIDIOL [Suspect]
     Active Substance: CANNABIDIOL
     Route: 065
  14. SACCHAROMYCES BOULARDII [Suspect]
     Active Substance: SACCHAROMYCES CEREVISIAE
     Route: 065
  15. TEA, GREEN [Suspect]
     Active Substance: GREEN TEA LEAF
     Route: 065
  16. GAMMA-AMINOBUTYRIC ACID [Suspect]
     Active Substance: .GAMMA.-AMINOBUTYRIC ACID
     Route: 065
  17. SODIUM CHLORIDE. [Suspect]
     Active Substance: SODIUM CHLORIDE
     Route: 065
  18. TRIMETHOPRIM. [Suspect]
     Active Substance: TRIMETHOPRIM
     Route: 065
  19. ZINC. [Suspect]
     Active Substance: ZINC
     Route: 065
  20. QUETIAPINE. [Suspect]
     Active Substance: QUETIAPINE
     Route: 048
  21. SILYBUM MARIANUM [Suspect]
     Active Substance: DIETARY SUPPLEMENT\HERBALS\MILK THISTLE
     Route: 065
  22. GLUTATHIONE [Suspect]
     Active Substance: GLUTATHIONE
     Route: 065
  23. MILK [Suspect]
     Active Substance: COW MILK
     Route: 065
  24. ORNITHINE [Suspect]
     Active Substance: ORNITHINE
     Route: 065
  25. LAMOTRIGINE. [Suspect]
     Active Substance: LAMOTRIGINE
     Route: 065

REACTIONS (2)
  - Metal poisoning [Unknown]
  - Seizure [Unknown]

NARRATIVE: CASE EVENT DATE: 202006
